FAERS Safety Report 16749746 (Version 2)
Quarter: 2019Q3

REPORT INFORMATION
  Report Type: Spontaneous
  Country: FR (occurrence: FR)
  Receive Date: 20190828
  Receipt Date: 20190904
  Transmission Date: 20191005
  Serious: Yes (Other)
  Sender: FDA-Public Use
  Company Number: PHHY2019FR192494

PATIENT
  Age: 60 Year
  Sex: Female
  Weight: 58 kg

DRUGS (3)
  1. ZOLEDRONIC ACID [Suspect]
     Active Substance: ZOLEDRONIC ACID
     Indication: BONE DECALCIFICATION
     Dosage: 5/100 MG/ML, QD
     Route: 042
     Dates: start: 20190729
  2. EFFERALGAN [Concomitant]
     Active Substance: ACETAMINOPHEN
     Indication: PRODUCT USED FOR UNKNOWN INDICATION
     Dosage: 1 G, TID
     Route: 048
  3. SIMVASTATINE [Concomitant]
     Active Substance: SIMVASTATIN
     Indication: PRODUCT USED FOR UNKNOWN INDICATION
     Dosage: 10 MG, UNK
     Route: 065

REACTIONS (15)
  - Lacrimation increased [Unknown]
  - Swelling of eyelid [Unknown]
  - Eye pain [Recovered/Resolved]
  - Diplopia [Unknown]
  - Vision blurred [Unknown]
  - Ocular hyperaemia [Unknown]
  - Eye haemorrhage [Unknown]
  - Headache [Unknown]
  - Conjunctival haemorrhage [Recovered/Resolved]
  - Photophobia [Unknown]
  - Facial pain [Unknown]
  - Nausea [Unknown]
  - Eye inflammation [Unknown]
  - Thrombosis [Unknown]
  - Eye pain [Unknown]

NARRATIVE: CASE EVENT DATE: 20190731
